FAERS Safety Report 21646652 (Version 1)
Quarter: 2022Q4

REPORT INFORMATION
  Report Type: Spontaneous
  Country: DE (occurrence: DE)
  Receive Date: 20221127
  Receipt Date: 20221127
  Transmission Date: 20230112
  Serious: Yes (Other)
  Sender: FDA-Public Use
  Company Number: None

PATIENT
  Sex: Male
  Weight: 96 kg

DRUGS (1)
  1. SIMVASTATIN [Suspect]
     Active Substance: SIMVASTATIN
     Indication: Hypercholesterolaemia
     Dosage: FIRST USE, UNIT DOSE: 20 MG, FREQ TIME: 1 DAY
     Route: 065
     Dates: start: 2019

REACTIONS (2)
  - Blood creatine phosphokinase [Recovered/Resolved]
  - Myalgia [Recovered/Resolved]
